FAERS Safety Report 6787966-X (Version None)
Quarter: 2010Q2

REPORT INFORMATION
  Report Type: 
  Country: None (occurrence: None)
  Receive Date: 20100623
  Receipt Date: 20071121
  Transmission Date: 20101027
  Serious: Yes (Other)
  Sender: FDA-Public Use
  Company Number: US-PFIZER INC-2007098584

PATIENT
  Sex: Male
  Weight: 89 kg

DRUGS (1)
  1. SUTENT [Suspect]
     Indication: RENAL CANCER METASTATIC
     Route: 048
     Dates: start: 20070925

REACTIONS (7)
  - DIARRHOEA [None]
  - FATIGUE [None]
  - FLATULENCE [None]
  - HAIR COLOUR CHANGES [None]
  - HYPERTENSION [None]
  - RASH [None]
  - YELLOW SKIN [None]
